FAERS Safety Report 17682488 (Version 20)
Quarter: 2021Q3

REPORT INFORMATION
  Report Type: Report from Study
  Country: None (occurrence: NL)
  Receive Date: 20200418
  Receipt Date: 20210713
  Transmission Date: 20211014
  Serious: Yes (Hospitalization, Other)
  Sender: FDA-Public Use
  Company Number: NL-ABBVIE-19K-114-3201168-00

PATIENT
  Age: 66 Year
  Sex: Male

DRUGS (25)
  1. DUODOPA [Suspect]
     Active Substance: CARBIDOPA\LEVODOPA
     Route: 050
  2. DUODOPA [Suspect]
     Active Substance: CARBIDOPA\LEVODOPA
     Dosage: MD: 6.0 ML, CD: 5.3 ML/H, ED: 3.0ML
     Route: 050
  3. ENTACAPONE. [Concomitant]
     Active Substance: ENTACAPONE
     Indication: PARKINSON^S DISEASE
     Route: 048
  4. RIVASTIGMIN [Concomitant]
     Active Substance: RIVASTIGMINE
     Indication: PRODUCT USED FOR UNKNOWN INDICATION
  5. PANTOPRAZOLE [Concomitant]
     Active Substance: PANTOPRAZOLE
     Indication: PRODUCT USED FOR UNKNOWN INDICATION
  6. LORAZEPAM. [Concomitant]
     Active Substance: LORAZEPAM
     Indication: PRODUCT USED FOR UNKNOWN INDICATION
  7. DUODOPA [Suspect]
     Active Substance: CARBIDOPA\LEVODOPA
     Dosage: CD: 4.8 ML/H
     Route: 050
  8. MIRTAZAPINE. [Concomitant]
     Active Substance: MIRTAZAPINE
     Indication: PRODUCT USED FOR UNKNOWN INDICATION
  9. DUODOPA [Suspect]
     Active Substance: CARBIDOPA\LEVODOPA
     Dosage: MD: 8, CD: 6, ED: 3?REMAINS AT 16 HOURS
     Route: 050
  10. DOMPERIDONE [Concomitant]
     Active Substance: DOMPERIDONE
     Indication: ABDOMINAL PAIN
  11. MOVICOLON [Concomitant]
     Active Substance: POLYETHYLENE GLYCOL 3350\POTASSIUM CHLORIDE\SODIUM BICARBONATE\SODIUM CHLORIDE
     Indication: ABNORMAL FAECES
     Dosage: 3 SACHETS PER DAY
  12. DUODOPA [Suspect]
     Active Substance: CARBIDOPA\LEVODOPA
     Indication: PARKINSON^S DISEASE
     Dosage: MD 8.0 CD 6.0 ED 3.0 ND 3.5
     Route: 050
     Dates: start: 20160805
  13. DUODOPA [Suspect]
     Active Substance: CARBIDOPA\LEVODOPA
     Dosage: MD: 0, CD: 5.5, ED: 0?REMAINS AT 16 HOURS
     Route: 050
  14. DUODOPA [Suspect]
     Active Substance: CARBIDOPA\LEVODOPA
     Dosage: CD: 5.0 ML/H
     Route: 050
  15. MADOPAR DISPERSIBL [Concomitant]
     Active Substance: BENSERAZIDE HYDROCHLORIDE\LEVODOPA
     Indication: PARKINSON^S DISEASE
     Dosage: IF NEEDED IN CASE OF OFF COMPLAINTS
     Route: 048
  16. DUODOPA [Suspect]
     Active Substance: CARBIDOPA\LEVODOPA
     Dosage: MD 8.0 CD 6.0 ND 3.5 INCREASED THE EXTRA DOSE INCREASED FROM 3.0 ML TO 3.5 ML
     Route: 050
  17. CLOZAPINE. [Concomitant]
     Active Substance: CLOZAPINE
     Indication: PRODUCT USED FOR UNKNOWN INDICATION
  18. SIMVASTATIN. [Concomitant]
     Active Substance: SIMVASTATIN
     Indication: PRODUCT USED FOR UNKNOWN INDICATION
  19. DUODOPA [Suspect]
     Active Substance: CARBIDOPA\LEVODOPA
     Dosage: MD: 5, CD: 6, ED: 3?REMAINS AT 16 HOURS
     Route: 050
  20. DUODOPA [Suspect]
     Active Substance: CARBIDOPA\LEVODOPA
     Dosage: CD: 4.6 ML/H
     Route: 050
  21. MACROGOL [Concomitant]
     Active Substance: POLYETHYLENE GLYCOLS
     Indication: ABNORMAL FAECES
  22. DUODOPA [Suspect]
     Active Substance: CARBIDOPA\LEVODOPA
     Dosage: MD 6.0 CD 5.5 ED 3.0 ND 3.5?20 MG/ML 5 MG/ML
     Route: 050
     Dates: start: 20160805
  23. DUODOPA [Suspect]
     Active Substance: CARBIDOPA\LEVODOPA
     Dosage: MD 6.0 CD 5.3 ED 3.0 ND 3.5?REMAINED AT 24 HOURS
     Route: 050
  24. PARACETAMOL [Concomitant]
     Active Substance: ACETAMINOPHEN
     Indication: PRODUCT USED FOR UNKNOWN INDICATION
     Dosage: 1 AS REQUIRED?IF NEEDED
  25. COMTAN [Concomitant]
     Active Substance: ENTACAPONE
     Indication: HALLUCINATION
     Dates: end: 20200612

REACTIONS (73)
  - Urinary tract infection [Recovered/Resolved]
  - Malaise [Unknown]
  - Loss of personal independence in daily activities [Not Recovered/Not Resolved]
  - Memory impairment [Not Recovered/Not Resolved]
  - Organic brain syndrome [Not Recovered/Not Resolved]
  - Emotional distress [Not Recovered/Not Resolved]
  - On and off phenomenon [Recovering/Resolving]
  - Musculoskeletal stiffness [Not Recovered/Not Resolved]
  - Panic reaction [Recovered/Resolved]
  - Muscle spasms [Not Recovered/Not Resolved]
  - Depression [Not Recovered/Not Resolved]
  - Unevaluable event [Recovered/Resolved]
  - Device issue [Unknown]
  - Pain [Not Recovered/Not Resolved]
  - Device difficult to use [Recovered/Resolved]
  - Bedridden [Not Recovered/Not Resolved]
  - Abnormal faeces [Recovered/Resolved]
  - Bowel movement irregularity [Unknown]
  - Hypersomnia [Not Recovered/Not Resolved]
  - Abnormal dreams [Not Recovered/Not Resolved]
  - Device dislocation [Unknown]
  - General physical health deterioration [Not Recovered/Not Resolved]
  - Middle insomnia [Recovering/Resolving]
  - Dystonia [Not Recovered/Not Resolved]
  - Abnormal behaviour [Not Recovered/Not Resolved]
  - Abdominal distension [Unknown]
  - Confusional state [Recovered/Resolved]
  - Agitation [Unknown]
  - Bradykinesia [Recovering/Resolving]
  - Constipation [Recovered/Resolved]
  - On and off phenomenon [Recovered/Resolved]
  - Disturbance in attention [Not Recovered/Not Resolved]
  - Intentional medical device removal by patient [Not Recovered/Not Resolved]
  - Intentional device misuse [Not Recovered/Not Resolved]
  - Hallucination, visual [Not Recovered/Not Resolved]
  - Hyperkinesia [Not Recovered/Not Resolved]
  - Wrong technique in device usage process [Recovered/Resolved]
  - Device issue [Recovered/Resolved]
  - Intentional device misuse [Unknown]
  - Intestinal sepsis [Not Recovered/Not Resolved]
  - Medical device change [Recovered/Resolved]
  - Dyschezia [Recovered/Resolved]
  - Decreased appetite [Not Recovered/Not Resolved]
  - Abdominal pain [Recovering/Resolving]
  - Confusional state [Not Recovered/Not Resolved]
  - Anxiety [Recovering/Resolving]
  - Dyskinesia [Unknown]
  - Surgery [Unknown]
  - Weight decreased [Recovered/Resolved]
  - Small intestinal perforation [Not Recovered/Not Resolved]
  - Cognitive disorder [Not Recovered/Not Resolved]
  - Device use issue [Unknown]
  - General physical health deterioration [Not Recovered/Not Resolved]
  - Delusion [Not Recovered/Not Resolved]
  - Sleep disorder [Unknown]
  - Stoma site extravasation [Recovered/Resolved]
  - Cognitive disorder [Not Recovered/Not Resolved]
  - Disturbance in attention [Unknown]
  - Muscle rigidity [Not Recovered/Not Resolved]
  - Restlessness [Not Recovered/Not Resolved]
  - Therapeutic product effect incomplete [Not Recovered/Not Resolved]
  - Device dislocation [Not Recovered/Not Resolved]
  - Device kink [Not Recovered/Not Resolved]
  - Gastrointestinal disorder [Unknown]
  - Gait disturbance [Recovering/Resolving]
  - Fall [Not Recovered/Not Resolved]
  - Freezing phenomenon [Not Recovered/Not Resolved]
  - Stoma site discharge [Not Recovered/Not Resolved]
  - Stoma site irritation [Recovered/Resolved]
  - Device placement issue [Unknown]
  - Device dislocation [Recovered/Resolved]
  - Off label use [Unknown]
  - Stoma site pain [Not Recovered/Not Resolved]

NARRATIVE: CASE EVENT DATE: 2020
